FAERS Safety Report 24044064 (Version 1)
Quarter: 2024Q3

REPORT INFORMATION
  Report Type: Spontaneous
  Country: DE (occurrence: DE)
  Receive Date: 20240703
  Receipt Date: 20240703
  Transmission Date: 20241017
  Serious: Yes (Other)
  Sender: TEVA
  Company Number: DE-EMBRYOTOX-202308039

PATIENT
  Sex: Male
  Weight: 2.6 kg

DRUGS (5)
  1. METOPROLOL [Suspect]
     Active Substance: METOPROLOL
     Indication: Hypertension
     Dosage: 95 [MG/D] 2 SEPARATED DOSES, METOPROLOL SUCCINATE, DURATION: 274 DAYS
     Route: 064
     Dates: start: 20230522, end: 20240219
  2. ASPIRIN [Concomitant]
     Active Substance: ASPIRIN
     Indication: Prophylaxis
     Dosage: 150 [MG/D], DURATION:162 DAYS
     Route: 064
     Dates: start: 20230821, end: 20240129
  3. LEVOTHYROXINE SODIUM\POTASSIUM IODIDE [Concomitant]
     Active Substance: LEVOTHYROXINE SODIUM\POTASSIUM IODIDE
     Indication: Hypothyroidism
     Dosage: 100 [?G/D] / 150 [?G/D]/ 75 ?G/D INITIALLY, FROM GW 20: 100 ?G/D, DURATION:274 DAYS
     Route: 064
     Dates: start: 20230522, end: 20240219
  4. ATORVASTATIN [Concomitant]
     Active Substance: ATORVASTATIN
     Indication: Type IIa hyperlipidaemia
     Dosage: 20 [MG/2D]/ EVERY 2ND DAYS
     Route: 064
  5. COVAXIS [Concomitant]
     Indication: Immunisation
     Dosage: DURATION: 1 DAY
     Route: 064
     Dates: start: 20240102, end: 20240102

REACTIONS (2)
  - Small for dates baby [Recovered/Resolved]
  - Foetal exposure during pregnancy [Unknown]

NARRATIVE: CASE EVENT DATE: 20240201
